FAERS Safety Report 6213312-6 (Version None)
Quarter: 2009Q2

REPORT INFORMATION
  Report Type: 
  Country: None (occurrence: None)
  Receive Date: 20090603
  Receipt Date: 20090528
  Transmission Date: 20091009
  Serious: Yes (Other)
  Sender: FDA-Public Use
  Company Number: BE-GILEAD-2009-0022306

PATIENT

DRUGS (1)
  1. HEPSERA [Suspect]

REACTIONS (1)
  - FANCONI SYNDROME ACQUIRED [None]
